FAERS Safety Report 8121267-2 (Version None)
Quarter: 2012Q1

REPORT INFORMATION
  Report Type: 
  Country: None (occurrence: None)
  Receive Date: 20120208
  Receipt Date: 20120202
  Transmission Date: 20120608
  Serious: Yes (Life-Threatening, Hospitalization, Other)
  Sender: FDA-Public Use
  Company Number: US-BAYER-2011-031164

PATIENT
  Age: 50 Year
  Sex: Female
  Weight: 59.41 kg

DRUGS (2)
  1. YAZ [Suspect]
     Indication: CONTRACEPTION
     Dosage: UNK
     Route: 048
     Dates: start: 20070101, end: 20080401
  2. YAZ [Suspect]
     Indication: PREMENSTRUAL SYNDROME

REACTIONS (11)
  - INCISIONAL HERNIA [None]
  - ASTHENIA [None]
  - FATIGUE [None]
  - ANXIETY [None]
  - INJURY [None]
  - HEPATIC CYST [None]
  - CHOLECYSTECTOMY [None]
  - PAIN [None]
  - GENERAL PHYSICAL HEALTH DETERIORATION [None]
  - HEPATIC NEOPLASM [None]
  - ANHEDONIA [None]
